FAERS Safety Report 5178547-2 (Version None)
Quarter: 2006Q4

REPORT INFORMATION
  Report Type: 
  Country: None (occurrence: None)
  Receive Date: 20061218
  Receipt Date: 20060816
  Transmission Date: 20070319
  Serious: No
  Sender: FDA-Public Use
  Company Number: US-AMGEN-KDL190332

PATIENT
  Sex: Male

DRUGS (1)
  1. ENBREL [Suspect]
     Indication: PSORIASIS
     Route: 058
     Dates: start: 20060726

REACTIONS (4)
  - CHEILITIS [None]
  - JOINT SWELLING [None]
  - OEDEMA PERIPHERAL [None]
  - PHARYNGOLARYNGEAL PAIN [None]
